FAERS Safety Report 6153205-6 (Version None)
Quarter: 2009Q2

REPORT INFORMATION
  Report Type: 
  Country: None (occurrence: None)
  Receive Date: 20090409
  Receipt Date: 20090330
  Transmission Date: 20091009
  Serious: Yes (Hospitalization)
  Sender: FDA-Public Use
  Company Number: GXKR2009DK04200

PATIENT
  Age: 81 Year
  Sex: Female

DRUGS (2)
  1. FLUCONAZOLE [Suspect]
     Indication: FUNGAL INFECTION
     Dosage: 100 MG, DAILY, ORAL
     Route: 048
     Dates: start: 20090208, end: 20090216
  2. MAREVAN ^NYCOMED^ (WARFARIN SODIUM) [Concomitant]

REACTIONS (2)
  - HAEMORRHAGE [None]
  - MALAISE [None]
